FAERS Safety Report 7635573-9 (Version None)
Quarter: 2011Q3

REPORT INFORMATION
  Report Type: 
  Country: None (occurrence: None)
  Receive Date: 20110726
  Receipt Date: 20110711
  Transmission Date: 20111222
  Serious: Yes (Hospitalization, Other)
  Sender: FDA-Public Use
  Company Number: PHHY2011AR46353

PATIENT
  Sex: Female

DRUGS (1)
  1. DIOVAN [Suspect]
     Dosage: 1 DF DAILY (80 MG)
     Dates: start: 20100201

REACTIONS (7)
  - COLONIC POLYP [None]
  - OSTEOPOROSIS [None]
  - INTESTINAL POLYP [None]
  - BALANCE DISORDER [None]
  - MUSCULOSKELETAL DISCOMFORT [None]
  - BACK PAIN [None]
  - GAIT DISTURBANCE [None]
